FAERS Safety Report 7820261-6 (Version None)
Quarter: 2011Q4

REPORT INFORMATION
  Report Type: 
  Country: None (occurrence: None)
  Receive Date: 20111013
  Receipt Date: 20110930
  Transmission Date: 20120403
  Serious: Yes (Hospitalization, Other)
  Sender: FDA-Public Use
  Company Number: AUR-APL-2010-00653

PATIENT
  Age: 45 Year
  Sex: Male

DRUGS (10)
  1. SAQUINAVIR (SAQUINAVIR) [Suspect]
     Indication: HIV INFECTION
     Dates: start: 20031001
  2. ZIDOVUDINE [Suspect]
     Indication: HIV INFECTION
     Dates: start: 20110701
  3. ABACAVIR [Suspect]
     Indication: HIV INFECTION
     Dates: start: 20031001
  4. STAVUDINE [Suspect]
     Indication: HIV INFECTION
     Dates: start: 19991101
  5. NELFINAVIR MESYLATE [Suspect]
     Indication: HIV INFECTION
     Dates: start: 19991101
  6. LOPINAVIR (LOPINAVIR) [Suspect]
     Indication: HIV INFECTION
     Dates: start: 20040701
  7. DIDANOSINE [Suspect]
     Indication: HIV INFECTION
     Dates: start: 19991101
  8. INDINIVIR SULFATE [Suspect]
     Indication: HIV INFECTION
     Dates: start: 20020701
  9. RITONAVIR [Suspect]
     Indication: HIV INFECTION
     Dates: start: 20031001
  10. LAMIVUDINE [Suspect]
     Indication: HIV INFECTION
     Dates: start: 20031001

REACTIONS (3)
  - OSTEONECROSIS [None]
  - PULMONARY TUBERCULOSIS [None]
  - LIPODYSTROPHY ACQUIRED [None]
